FAERS Safety Report 13472572 (Version 1)
Quarter: 2017Q2

REPORT INFORMATION
  Report Type: Spontaneous
  Country: CH (occurrence: FR)
  Receive Date: 20170424
  Receipt Date: 20170424
  Transmission Date: 20170830
  Serious: Yes (Other)
  Sender: FDA-Public Use
  Company Number: CH-LPDUSPRD-20170444

PATIENT
  Age: 73 Year
  Sex: Male

DRUGS (1)
  1. FERINJECT [Suspect]
     Active Substance: FERRIC CARBOXYMALTOSE
     Dosage: 1 GRAM, 1 IN 1 TOTAL
     Route: 041
     Dates: start: 20170310, end: 20170310

REACTIONS (2)
  - Hypertension [Unknown]
  - Renal pain [Unknown]

NARRATIVE: CASE EVENT DATE: 20170310
